FAERS Safety Report 8969598 (Version 1)
Quarter: 2012Q4

REPORT INFORMATION
  Report Type: 
  Country: DE (occurrence: DE)
  Receive Date: 20121217
  Receipt Date: 20121217
  Transmission Date: 20130627
  Serious: Yes (Other)
  Sender: FDA-Public Use
  Company Number: DE-ROCHE-1167543

PATIENT
  Age: 26 Year
  Sex: Female
  Weight: 39 kg

DRUGS (1)
  1. LARIAM [Suspect]
     Indication: MALARIA PROPHYLAXIS
     Route: 048

REACTIONS (5)
  - Panic attack [Unknown]
  - Anxiety [Unknown]
  - Nausea [Unknown]
  - Weight decreased [Unknown]
  - Depression [Unknown]
